FAERS Safety Report 10041358 (Version 2)
Quarter: 2014Q2

REPORT INFORMATION
  Report Type: Spontaneous
  Country: US (occurrence: US)
  Receive Date: 20140327
  Receipt Date: 20140429
  Transmission Date: 20141212
  Serious: No
  Sender: FDA-Public Use
  Company Number: US-009507513-1403USA007618

PATIENT
  Age: 82 Year
  Sex: Female
  Weight: 52.61 kg

DRUGS (3)
  1. OXYTROL FOR WOMEN [Suspect]
     Indication: PRODUCT USED FOR UNKNOWN INDICATION
     Dosage: UNK, Q4D
     Route: 062
  2. CENTRUM SILVER [Concomitant]
     Indication: PRODUCT USED FOR UNKNOWN INDICATION
     Dosage: UNK, UNKNOWN
  3. JOINT JUICE [Concomitant]
     Indication: ARTHRALGIA
     Dosage: UNK, UNKNOWN

REACTIONS (4)
  - Depression [Recovered/Resolved]
  - Dizziness [Recovered/Resolved]
  - Pollakiuria [Recovered/Resolved]
  - Malaise [Recovered/Resolved]
